FAERS Safety Report 14360765 (Version 2)
Quarter: 2018Q1

REPORT INFORMATION
  Report Type: Spontaneous
  Country: SK (occurrence: SK)
  Receive Date: 20180107
  Receipt Date: 20180118
  Transmission Date: 20180509
  Serious: Yes (Life-Threatening, Hospitalization)
  Sender: FDA-Public Use
  Company Number: SK-TEVA-2017-SK-842326

PATIENT
  Age: 53 Year
  Sex: Female

DRUGS (17)
  1. CICLOSPORIN [Suspect]
     Active Substance: CYCLOSPORINE
     Indication: IMMUNOSUPPRESSANT DRUG THERAPY
     Dosage: 25MG-0-50MG
     Route: 065
  2. VORICONAZOLE. [Interacting]
     Active Substance: VORICONAZOLE
     Indication: ASPERGILLUS INFECTION
     Route: 042
  3. ANIDULAFUNGIN [Interacting]
     Active Substance: ANIDULAFUNGIN
     Indication: ASPERGILLUS INFECTION
     Route: 042
  4. NOREPINEPHRINE. [Concomitant]
     Active Substance: NOREPINEPHRINE
     Indication: HYPOTENSION
     Dosage: ROUTE: INFUSION
     Route: 042
  5. PYRAZINAMIDE. [Interacting]
     Active Substance: PYRAZINAMIDE
     Route: 065
  6. HYDROCORTISONE. [Concomitant]
     Active Substance: HYDROCORTISONE
     Indication: IMMUNOSUPPRESSANT DRUG THERAPY
     Route: 065
  7. PIPERACILIIN-TAZOBACTAM [Concomitant]
     Route: 065
  8. MYCOPHENOLATE-MOFETIL [Suspect]
     Active Substance: MYCOPHENOLATE MOFETIL
     Indication: IMMUNOSUPPRESSANT DRUG THERAPY
     Route: 065
  9. VORICONAZOLE. [Interacting]
     Active Substance: VORICONAZOLE
     Route: 042
  10. ETHAMBUTOL [Interacting]
     Active Substance: ETHAMBUTOL HYDROCHLORIDE
     Route: 065
  11. LINEZOLID. [Concomitant]
     Active Substance: LINEZOLID
     Route: 042
  12. CIPROFLOXACIN. [Concomitant]
     Active Substance: CIPROFLOXACIN
     Route: 065
  13. ISONIAZID. [Interacting]
     Active Substance: ISONIAZID
     Route: 065
  14. ANIDULAFUNGIN [Interacting]
     Active Substance: ANIDULAFUNGIN
     Indication: ASPERGILLUS INFECTION
     Route: 042
  15. METHYLPREDNISOLONE. [Suspect]
     Active Substance: METHYLPREDNISOLONE
     Indication: IMMUNOSUPPRESSANT DRUG THERAPY
     Route: 065
  16. RIFAMPICIN [Interacting]
     Active Substance: RIFAMPIN
     Route: 065
  17. CICLOSPORIN [Suspect]
     Active Substance: CYCLOSPORINE
     Indication: IMMUNOSUPPRESSANT DRUG THERAPY
     Dosage: 25MG-0-50MG
     Route: 065

REACTIONS (15)
  - Multiple organ dysfunction syndrome [Recovered/Resolved]
  - Acute kidney injury [Recovered/Resolved]
  - Acute respiratory distress syndrome [Recovered/Resolved]
  - Aspergillus infection [Recovered/Resolved]
  - Pneumothorax [Recovered/Resolved]
  - Disseminated tuberculosis [Recovered/Resolved]
  - Staphylococcal infection [Recovered/Resolved]
  - Pneumonia [Recovered/Resolved]
  - Drug level decreased [Recovered/Resolved]
  - Drug interaction [Recovered/Resolved]
  - Tuberculosis gastrointestinal [Recovered/Resolved]
  - Pleural effusion [Recovered/Resolved]
  - Sepsis [Recovered/Resolved]
  - Septic shock [Recovered/Resolved]
  - Pseudomonas infection [Recovered/Resolved]
